FAERS Safety Report 9477606 (Version 2)
Quarter: 2014Q1

REPORT INFORMATION
  Report Type: Spontaneous
  Country: US (occurrence: US)
  Receive Date: 20130827
  Receipt Date: 20140106
  Transmission Date: 20141002
  Serious: No
  Sender: FDA-Public Use
  Company Number: US-BIOGENIDEC-2013BI079873

PATIENT
  Sex: Female

DRUGS (1)
  1. AVONEX [Suspect]
     Indication: MULTIPLE SCLEROSIS
     Route: 030
     Dates: start: 19960801, end: 2012

REACTIONS (11)
  - Cholelithiasis [Unknown]
  - Intervertebral disc disorder [Unknown]
  - Gait disturbance [Unknown]
  - Nasopharyngitis [Unknown]
  - Oropharyngeal pain [Unknown]
  - Drug intolerance [Unknown]
  - Adverse event [Recovered/Resolved]
  - Central nervous system lesion [Unknown]
  - Multiple sclerosis relapse [Unknown]
  - Influenza like illness [Unknown]
  - Pain [Unknown]
